FAERS Safety Report 7386637-9 (Version None)
Quarter: 2011Q1

REPORT INFORMATION
  Report Type: 
  Country: None (occurrence: None)
  Receive Date: 20110331
  Receipt Date: 20110323
  Transmission Date: 20110831
  Serious: Yes (Hospitalization)
  Sender: FDA-Public Use
  Company Number: US-ROCHE-767685

PATIENT

DRUGS (2)
  1. XELODA [Suspect]
     Route: 065
  2. OXALIPLATIN [Concomitant]

REACTIONS (1)
  - CARDIAC DISORDER [None]
